FAERS Safety Report 11822455 (Version 1)
Quarter: 2015Q4

REPORT INFORMATION
  Report Type: Spontaneous
  Country: US (occurrence: US)
  Receive Date: 20151210
  Receipt Date: 20151210
  Transmission Date: 20160305
  Serious: Yes (Hospitalization)
  Sender: FDA-Public Use
  Company Number: US-JNJFOC-20150519126

PATIENT
  Age: 61 Year
  Sex: Male

DRUGS (9)
  1. PREDNISONE. [Concomitant]
     Active Substance: PREDNISONE
  2. ALLOPURINOL. [Concomitant]
     Active Substance: ALLOPURINOL
  3. IMBRUVICA [Suspect]
     Active Substance: IBRUTINIB
     Indication: CHRONIC LYMPHOCYTIC LEUKAEMIA
     Route: 048
     Dates: start: 20140619, end: 2015
  4. PROTONIX [Concomitant]
     Active Substance: PANTOPRAZOLE SODIUM
  5. ACYCLOVIR. [Concomitant]
     Active Substance: ACYCLOVIR
  6. LUMIGAN [Concomitant]
     Active Substance: BIMATOPROST
  7. AMOXICILLIN. [Concomitant]
     Active Substance: AMOXICILLIN
  8. RITUXAN [Concomitant]
     Active Substance: RITUXIMAB
  9. NEUPOGEN [Concomitant]
     Active Substance: FILGRASTIM

REACTIONS (1)
  - White blood cell count decreased [Recovering/Resolving]

NARRATIVE: CASE EVENT DATE: 201505
